FAERS Safety Report 12397638 (Version 5)
Quarter: 2018Q2

REPORT INFORMATION
  Report Type: Spontaneous
  Country: US (occurrence: US)
  Receive Date: 20160524
  Receipt Date: 20180629
  Transmission Date: 20180711
  Serious: Yes (Other)
  Sender: FDA-Public Use
  Company Number: US-PFIZER INC-2016263674

PATIENT
  Age: 20 Year
  Sex: Male
  Weight: 68.27 kg

DRUGS (2)
  1. BENEFIX [Suspect]
     Active Substance: COAGULATION FACTOR IX RECOMBINANT HUMAN\ISOPROPYL ALCOHOL
     Indication: FACTOR IX DEFICIENCY
     Dosage: 8100 IU, AS NEEDED (8100 U IV DAILY PRN )
     Route: 042
  2. BENEFIX [Suspect]
     Active Substance: COAGULATION FACTOR IX RECOMBINANT HUMAN\ISOPROPYL ALCOHOL
     Indication: HAEMORRHAGE
     Dosage: 4700 IU, AS NEEDED (4700 U IV DAILY PRN)

REACTIONS (3)
  - Joint injury [Unknown]
  - Haemorrhage [Unknown]
  - Fall [Unknown]
